FAERS Safety Report 9427613 (Version 1)
Quarter: 2013Q3

REPORT INFORMATION
  Report Type: Report from Study
  Country: US (occurrence: US)
  Receive Date: 20130730
  Receipt Date: 20130730
  Transmission Date: 20140515
  Serious: No
  Sender: FDA-Public Use
  Company Number: US-ABBOTT-12P-163-0987806-00

PATIENT
  Sex: Male

DRUGS (3)
  1. NIASPAN (COATED) [Suspect]
     Indication: TOTAL CHOLESTEROL/HDL RATIO ABNORMAL
  2. NIASPAN (COATED) [Suspect]
  3. NIASPAN (COATED) [Suspect]

REACTIONS (3)
  - Flushing [Not Recovered/Not Resolved]
  - Pruritus [Not Recovered/Not Resolved]
  - Insomnia [Not Recovered/Not Resolved]
